FAERS Safety Report 25541523 (Version 1)
Quarter: 2025Q3

REPORT INFORMATION
  Report Type: Spontaneous
  Country: EU (occurrence: EU)
  Receive Date: 20250711
  Receipt Date: 20250711
  Transmission Date: 20251020
  Serious: Yes (Other)
  Sender: BAUSCH AND LOMB
  Company Number: EU-BAUSCH-BH-2025-014573

PATIENT
  Age: 26 Year
  Sex: Female
  Weight: 44.5 kg

DRUGS (10)
  1. BUDESONIDE [Suspect]
     Active Substance: BUDESONIDE
     Indication: Cystic fibrosis
     Route: 065
     Dates: start: 20240415, end: 20250109
  2. BUDESONIDE [Suspect]
     Active Substance: BUDESONIDE
     Indication: Product use in unapproved indication
  3. ELEXACAFTOR\IVACAFTOR\TEZACAFTOR [Suspect]
     Active Substance: ELEXACAFTOR\IVACAFTOR\TEZACAFTOR
     Indication: Cystic fibrosis
     Dosage: 100 MG /50 MG /75 MG
     Route: 065
     Dates: start: 20240415, end: 20250109
  4. KALYDECO [Suspect]
     Active Substance: IVACAFTOR
     Indication: Cystic fibrosis
     Route: 065
     Dates: start: 20240415, end: 20250109
  5. PANCRELIPASE [Suspect]
     Active Substance: PANCRELIPASE
     Indication: Cystic fibrosis
     Dosage: 25000 UNITS
     Route: 065
     Dates: start: 20240415, end: 20250109
  6. DESLORATADINE [Suspect]
     Active Substance: DESLORATADINE
     Indication: Product used for unknown indication
     Route: 065
     Dates: start: 20240415, end: 20250109
  7. TRIAMCINOLONE [Suspect]
     Active Substance: TRIAMCINOLONE
     Indication: Cystic fibrosis
     Route: 065
     Dates: start: 20240415, end: 20250109
  8. FORMOTEROL [Suspect]
     Active Substance: FORMOTEROL
     Indication: Cystic fibrosis
     Route: 065
     Dates: start: 20240415, end: 20250109
  9. CHOLECALCIFEROL [Suspect]
     Active Substance: CHOLECALCIFEROL
     Indication: Vitamin supplementation
     Route: 065
     Dates: start: 20240415, end: 20250109
  10. ESOMEPRAZOLE [Suspect]
     Active Substance: ESOMEPRAZOLE
     Indication: Cystic fibrosis
     Route: 065
     Dates: start: 20240415, end: 20250109

REACTIONS (3)
  - Pericardial effusion [Recovered/Resolved]
  - Maternal exposure during pregnancy [Recovered/Resolved]
  - Product use in unapproved indication [Recovered/Resolved]

NARRATIVE: CASE EVENT DATE: 20240415
